FAERS Safety Report 17999837 (Version 2)
Quarter: 2020Q3

REPORT INFORMATION
  Report Type: Spontaneous
  Country: US (occurrence: US)
  Receive Date: 20200709
  Receipt Date: 20200717
  Transmission Date: 20201103
  Serious: No
  Sender: FDA-Public Use
  Company Number: US-PFIZER INC-2020262861

PATIENT
  Sex: Female

DRUGS (11)
  1. POTASSIUM CHLORIDE. [Suspect]
     Active Substance: POTASSIUM CHLORIDE
     Dosage: 20 MEQ, 1X/DAY
  2. ZOLPIDEM [Suspect]
     Active Substance: ZOLPIDEM TARTRATE
     Indication: INSOMNIA
     Dosage: 5 MG, 1X/DAY [5 MG AT BEDTIME SLEEPING PILL]
  3. ESTRADIOL TRANSDERMAL SYSTEM [Suspect]
     Active Substance: ESTRADIOL
     Dosage: 0.025 MG [TRANS DERMAL PATCH 0.025 MG, ONCE A WEEK]
  4. BUMETANIDE. [Suspect]
     Active Substance: BUMETANIDE
     Dosage: 0.5 MG, AS NEEDED [0.5M EVERY OTHER DAY OR AS NEEDED]
  5. LOSARTAN. [Suspect]
     Active Substance: LOSARTAN
     Dosage: 25 MG, 1X/DAY
  6. CHOLESTYRAMINE. [Suspect]
     Active Substance: CHOLESTYRAMINE
     Dosage: UNK UNK, AS NEEDED (EVERY OTHER DAY OR AS NEEDED)
  7. VERAPAMIL HCL [Suspect]
     Active Substance: VERAPAMIL HYDROCHLORIDE
     Dosage: 120 MG, 2X/DAY
  8. PANTOPRAZOLE [Suspect]
     Active Substance: PANTOPRAZOLE
     Dosage: 40 MG, 2X/DAY
  9. HYDROCODONE [Suspect]
     Active Substance: HYDROCODONE
     Dosage: 10/325MG , 3X/DAY
  10. SLOW MAG [MAGNESIUM CHLORIDE] [Suspect]
     Active Substance: MAGNESIUM CHLORIDE
     Dosage: 1 DF, 2X/DAY [ONE TABLET, TWICE A DAY]
  11. ELIQUIS [Suspect]
     Active Substance: APIXABAN
     Indication: ANTICOAGULANT THERAPY
     Dosage: 5 MG, 2X/DAY

REACTIONS (2)
  - Product residue present [Unknown]
  - Product solubility abnormal [Unknown]
